FAERS Safety Report 5129967-3 (Version None)
Quarter: 2006Q4

REPORT INFORMATION
  Report Type: 
  Country: None (occurrence: None)
  Receive Date: 20061013
  Receipt Date: 20060927
  Transmission Date: 20070319
  Serious: No
  Sender: FDA-Public Use
  Company Number: AU200610000326

PATIENT
  Age: 40 Year
  Sex: Female

DRUGS (3)
  1. ZYPREXA [Suspect]
     Indication: DEPRESSION
     Dosage: 5 MG, EACH EVENING
     Dates: start: 20060913
  2. VENLAFAXINE HCL [Concomitant]
  3. ZOLPIDEM TARTRATE [Concomitant]

REACTIONS (4)
  - ANAEMIA [None]
  - CONTUSION [None]
  - FALL [None]
  - PALLOR [None]
